FAERS Safety Report 4525028-2 (Version None)
Quarter: 2004Q4

REPORT INFORMATION
  Report Type: 
  Country: None (occurrence: None)
  Receive Date: 20041213
  Receipt Date: 20041203
  Transmission Date: 20050328
  Serious: Yes (Other)
  Sender: FDA-Public Use
  Company Number: PHHO2004BR17224

PATIENT
  Age: 52 Year
  Sex: Male

DRUGS (4)
  1. ZELMAC / HTF 919A [Suspect]
     Indication: IRRITABLE BOWEL SYNDROME
     Dosage: 6 MG, BID
     Route: 048
     Dates: start: 20040720, end: 20040818
  2. PLANTABEN [Concomitant]
  3. PERIDIAL [Concomitant]
  4. MACROGOL [Concomitant]

REACTIONS (1)
  - DIARRHOEA [None]
